FAERS Safety Report 7626630-1 (Version None)
Quarter: 2011Q3

REPORT INFORMATION
  Report Type: 
  Country: None (occurrence: None)
  Receive Date: 20110721
  Receipt Date: 20110512
  Transmission Date: 20111222
  Serious: No
  Sender: FDA-Public Use
  Company Number: US-NOVEN-11US002461

PATIENT
  Sex: Male

DRUGS (5)
  1. FENTANYL [Suspect]
     Indication: BACK PAIN
  2. EQUATE                             /00002701/ [Concomitant]
     Indication: PAIN
     Dosage: UNK
     Route: 048
  3. TYLENOL-500 [Concomitant]
     Indication: ARTHRITIS
     Dosage: UNK
     Route: 048
  4. NAPROXEN SODIUM [Concomitant]
     Indication: ARTHRITIS
     Dosage: UNK
     Route: 048
  5. FENTANYL [Suspect]
     Indication: ARTHRITIS
     Dosage: 75 UG/HOUR
     Route: 062
     Dates: start: 20100101

REACTIONS (2)
  - INADEQUATE ANALGESIA [None]
  - DRUG ADMINISTRATION ERROR [None]
